FAERS Safety Report 8309762-4 (Version None)
Quarter: 2012Q2

REPORT INFORMATION
  Report Type: 
  Country: None (occurrence: None)
  Receive Date: 20120425
  Receipt Date: 20120416
  Transmission Date: 20120825
  Serious: Yes (Hospitalization)
  Sender: FDA-Public Use
  Company Number: PHHY2012JP033654

PATIENT
  Age: 23 Year
  Sex: Female

DRUGS (9)
  1. TANDOSPIRONE CITRATE [Concomitant]
     Dosage: 30 MG, UNK
     Route: 048
  2. SERTRALINE HYDROCHLORIDE [Concomitant]
     Dosage: 50 MG, UNK
     Route: 048
  3. HALOPERIDOL [Concomitant]
     Dosage: 9 MG, UNK
     Route: 048
  4. OLANZAPINE [Concomitant]
     Dosage: 20 MG, UNK
     Route: 048
  5. METHYLPHENIDATE HCL [Suspect]
     Route: 048
  6. RISPERIDONE [Concomitant]
     Dosage: 3 ML, UNK
     Route: 048
  7. OLANZAPINE [Concomitant]
     Dosage: 10 MG, UNK
     Route: 048
  8. PROPERICIAZINE [Concomitant]
     Dosage: 120 MG, UNK
     Route: 048
  9. LEVOMEPROMAZINE MALEATE [Concomitant]
     Dosage: 300 MG, UNK
     Route: 048

REACTIONS (10)
  - EATING DISORDER [None]
  - HYPERVENTILATION [None]
  - DEPRESSION [None]
  - ANXIETY [None]
  - INSOMNIA [None]
  - INTENTIONAL SELF-INJURY [None]
  - SUICIDAL IDEATION [None]
  - IRRITABILITY [None]
  - SUICIDAL BEHAVIOUR [None]
  - CONDUCT DISORDER [None]
